FAERS Safety Report 10258688 (Version 1)
Quarter: 2014Q2

REPORT INFORMATION
  Report Type: Spontaneous
  Country: IN (occurrence: None)
  Receive Date: 20140623
  Receipt Date: 20140623
  Transmission Date: 20141212
  Serious: Yes (Other)
  Sender: FDA-Public Use
  Company Number: SYM-2014-22215

PATIENT
  Age: 52 Year
  Sex: Male

DRUGS (1)
  1. METRONIDAZOLE (METRONIDAZOLE) [Suspect]
     Indication: HEPATIC AMOEBIASIS
     Route: 048

REACTIONS (5)
  - Neurotoxicity [None]
  - Gait disturbance [None]
  - Dysarthria [None]
  - Ataxia [None]
  - Nuclear magnetic resonance imaging brain abnormal [None]
